FAERS Safety Report 6882517-3 (Version None)
Quarter: 2010Q3

REPORT INFORMATION
  Report Type: 
  Country: None (occurrence: None)
  Receive Date: 20100729
  Receipt Date: 20100722
  Transmission Date: 20110219
  Serious: Yes (Death, Hospitalization, Other)
  Sender: FDA-Public Use
  Company Number: SE-BRISTOL-MYERS SQUIBB COMPANY-15206113

PATIENT
  Age: 46 Year
  Sex: Male

DRUGS (17)
  1. PRAVASTATIN [Suspect]
     Indication: HYPERCHOLESTEROLAEMIA
     Dates: start: 20100127
  2. ABACAVIR SULFATE AND LAMIVUDINE [Suspect]
     Dosage: FILM-COATED TABLET 600MG/300MG
     Dates: start: 20090305
  3. SIMVASTATIN [Suspect]
     Indication: HYPERCHOLESTEROLAEMIA
     Dates: start: 20091214
  4. ISENTRESS [Suspect]
     Dosage: FILM-COATED TABLET 400MG
     Dates: start: 20090507
  5. CREON [Concomitant]
     Dosage: CREON 10000.
  6. INSULATARD FLEXPEN [Concomitant]
  7. TRIOBE [Concomitant]
  8. E-VIMIN [Concomitant]
  9. ASCORBIC ACID [Concomitant]
  10. DIAZEPAM [Concomitant]
  11. KALEORID [Concomitant]
  12. ZESTRIL [Concomitant]
  13. SELOKEN ZOC [Concomitant]
  14. TROMBYL [Concomitant]
  15. ALLOPURINOL [Concomitant]
  16. XENICAL [Concomitant]
     Dosage: CAPSULE, HARD 120MG.
  17. TESTOSTERONE UNDECANOATE [Concomitant]

REACTIONS (3)
  - MULTI-ORGAN FAILURE [None]
  - PANCREATITIS ACUTE [None]
  - RHABDOMYOLYSIS [None]
